FAERS Safety Report 8549301-6 (Version None)
Quarter: 2012Q3

REPORT INFORMATION
  Report Type: 
  Country: None (occurrence: None)
  Receive Date: 20120730
  Receipt Date: 20120720
  Transmission Date: 20120928
  Serious: Yes (Other)
  Sender: FDA-Public Use
  Company Number: BR-ABBOTT-12P-020-0958579-00

PATIENT
  Age: 71 Year
  Sex: Female
  Weight: 86 kg

DRUGS (13)
  1. PROTOS [Concomitant]
     Indication: BONE DISORDER
  2. LEVOTHYROXINE SODIUM [Concomitant]
     Indication: HYPOTHYROIDISM
     Route: 048
     Dates: start: 20120101
  3. SINVASTON [Concomitant]
     Indication: BLOOD CHOLESTEROL ABNORMAL
     Dosage: AT NIGHT
     Route: 048
     Dates: start: 20120501
  4. VENLAFAXINE HYDROCHOLRIDE [Concomitant]
     Indication: MYALGIA
  5. LYRICA [Concomitant]
     Indication: NEUROPATHY PERIPHERAL
     Dosage: AT NIGHT
     Route: 048
     Dates: start: 20091001
  6. VENLAFAXINE HYDROCHOLRIDE [Concomitant]
  7. DEPAKOTE ER [Suspect]
     Indication: BIPOLAR DISORDER
     Dosage: AT NIGHT
     Route: 048
  8. PROTOS [Concomitant]
     Indication: THYROID DISORDER
     Dosage: ONCE AT NIGHT,1 SACHET IN 2 WATER MEASURES AS IF IT WAS A SYRUP CAP
     Route: 048
     Dates: start: 20120101
  9. CALCIUM CARBONATE [Concomitant]
     Indication: BONE DISORDER
     Dosage: AFTER THE LUNCH
     Route: 048
     Dates: start: 20120101
  10. LEVOTHYROXINE SODIUM [Concomitant]
     Indication: AUTOIMMUNE THYROIDITIS
     Dosage: IN THE MORNING
     Route: 048
     Dates: start: 20120101
  11. DEPURAN [Concomitant]
     Indication: THYROID DISORDER
     Dosage: IN THE MORNING
     Route: 048
     Dates: start: 20120101
  12. VENLAFAXINE HYDROCHOLRIDE [Concomitant]
     Indication: PAIN IN EXTREMITY
     Dosage: IN THE MORNING
     Route: 048
     Dates: start: 20091001
  13. VENLAFAXINE HYDROCHOLRIDE [Concomitant]

REACTIONS (16)
  - MOOD ALTERED [None]
  - HYPOVITAMINOSIS [None]
  - INCREASED APPETITE [None]
  - BIPOLAR DISORDER [None]
  - WEIGHT INCREASED [None]
  - MOUTH ULCERATION [None]
  - ORAL DISCOMFORT [None]
  - OFF LABEL USE [None]
  - WEIGHT DECREASED [None]
  - CHOLELITHIASIS [None]
  - CATARACT [None]
  - HYPOTHYROIDISM [None]
  - ANXIETY [None]
  - AGITATION [None]
  - GINGIVITIS [None]
  - DRUG INEFFECTIVE [None]
